FAERS Safety Report 5753450-5 (Version None)
Quarter: 2008Q2

REPORT INFORMATION
  Report Type: 
  Country: None (occurrence: None)
  Receive Date: 20080530
  Receipt Date: 20080520
  Transmission Date: 20081010
  Serious: Yes (Hospitalization, Other)
  Sender: FDA-Public Use
  Company Number: US-AMGEN-QUU278378

PATIENT
  Sex: Female

DRUGS (1)
  1. ENBREL [Suspect]
     Indication: PSORIASIS
     Route: 058
     Dates: start: 20050101, end: 20080401

REACTIONS (5)
  - ACUTE INTERSTITIAL PNEUMONITIS [None]
  - IMMUNOGLOBULINS DECREASED [None]
  - PNEUMONIA PRIMARY ATYPICAL [None]
  - PULMONARY HYPERTENSION [None]
  - RESPIRATORY DISTRESS [None]
